FAERS Safety Report 9769747 (Version 1)
Quarter: 2013Q4

REPORT INFORMATION
  Report Type: Spontaneous
  Country: US (occurrence: None)
  Receive Date: 20131217
  Receipt Date: 20131217
  Transmission Date: 20140711
  Serious: Yes (Hospitalization, Other)
  Sender: FDA-Public Use
  Company Number: None

PATIENT
  Age: 46 Year
  Sex: Female

DRUGS (2)
  1. QSYMIA [Suspect]
     Indication: WEIGHT DECREASED
     Dosage: 1 PILL, QD, ORAL
     Route: 048
  2. QSYMIA [Suspect]
     Indication: MIGRAINE PROPHYLAXIS
     Dosage: 1 PILL, QD, ORAL
     Route: 048

REACTIONS (1)
  - Angle closure glaucoma [None]
